FAERS Safety Report 10541470 (Version 20)
Quarter: 2017Q1

REPORT INFORMATION
  Report Type: Spontaneous
  Country: US (occurrence: US)
  Receive Date: 20141024
  Receipt Date: 20170307
  Transmission Date: 20170428
  Serious: Yes (Hospitalization, Other)
  Sender: FDA-Public Use
  Company Number: US-GLAXOSMITHKLINE-A1072475A

PATIENT
  Age: 71 Year
  Sex: Female

DRUGS (24)
  1. OPSUMIT [Suspect]
     Active Substance: MACITENTAN
     Indication: PRODUCT USED FOR UNKNOWN INDICATION
     Route: 065
  2. FLOLAN [Suspect]
     Active Substance: EPOPROSTENOL SODIUM
     Indication: PULMONARY ARTERIAL HYPERTENSION
     Dosage: 40.15 NG/KG/MIN, 45,000 NG/ML, 74 ML/DAY, 1.5 MG
     Route: 042
     Dates: start: 20100330
  3. FLOLAN [Suspect]
     Active Substance: EPOPROSTENOL SODIUM
     Dosage: 40.15 NG/KG/MIN
  4. FLOLAN [Suspect]
     Active Substance: EPOPROSTENOL SODIUM
     Dosage: 40.15 NG/KG/MIN
  5. FLOLAN [Suspect]
     Active Substance: EPOPROSTENOL SODIUM
     Dosage: 39.6 NG/KG/MIN, CO
  6. ADEMPAS [Suspect]
     Active Substance: RIOCIGUAT
     Indication: PRODUCT USED FOR UNKNOWN INDICATION
     Dosage: UNK
  7. ADEMPAS [Suspect]
     Active Substance: RIOCIGUAT
     Dosage: 1 MG, UNK
  8. FLOLAN [Suspect]
     Active Substance: EPOPROSTENOL SODIUM
     Dosage: UNK
     Dates: start: 20100410
  9. FLOLAN [Suspect]
     Active Substance: EPOPROSTENOL SODIUM
     Dosage: 47.55 NG/KG/MIN, CO
  10. FLOLAN [Suspect]
     Active Substance: EPOPROSTENOL SODIUM
     Dosage: UNK
     Dates: start: 20100410
  11. FLOLAN [Suspect]
     Active Substance: EPOPROSTENOL SODIUM
     Dosage: UNK
  12. FLOLAN [Suspect]
     Active Substance: EPOPROSTENOL SODIUM
     Dosage: 22 NG/KG/MIN, CO
     Route: 042
  13. FLOLAN [Suspect]
     Active Substance: EPOPROSTENOL SODIUM
     Dosage: 40.76 NG/KG/MIN CONTINUOUS
     Route: 042
     Dates: start: 20100409
  14. FLOLAN [Suspect]
     Active Substance: EPOPROSTENOL SODIUM
     Dosage: 31.25 DF, CO
     Dates: start: 20170104
  15. COUMADIN [Suspect]
     Active Substance: WARFARIN SODIUM
     Indication: PRODUCT USED FOR UNKNOWN INDICATION
     Dosage: UNK
  16. WARFARIN [Concomitant]
     Active Substance: WARFARIN
  17. FLOLAN [Suspect]
     Active Substance: EPOPROSTENOL SODIUM
     Dosage: 40.76 NG/KG/MIN, CONTINUOUSLY
     Dates: start: 20100409
  18. FLOLAN [Suspect]
     Active Substance: EPOPROSTENOL SODIUM
     Dosage: UNK, CO
     Dates: start: 20100409
  19. FLOLAN [Suspect]
     Active Substance: EPOPROSTENOL SODIUM
     Indication: PULMONARY ARTERIAL HYPERTENSION
  20. NITRIC OXIDE. [Concomitant]
     Active Substance: NITRIC OXIDE
     Indication: PRODUCT USED FOR UNKNOWN INDICATION
     Dosage: UNK
     Route: 065
  21. FLOLAN [Suspect]
     Active Substance: EPOPROSTENOL SODIUM
     Dosage: 40.76 NG/KG/MIN
     Route: 042
  22. ADCIRCA [Concomitant]
     Active Substance: TADALAFIL
  23. OPSUMIT [Concomitant]
     Active Substance: MACITENTAN
  24. ADEMPAS [Concomitant]
     Active Substance: RIOCIGUAT

REACTIONS (29)
  - Peripheral swelling [Unknown]
  - Emergency care [Not Recovered/Not Resolved]
  - Catheter site swelling [Unknown]
  - Joint swelling [Unknown]
  - Complication associated with device [Unknown]
  - Cardiac murmur [Unknown]
  - Pancreatic neoplasm [Unknown]
  - Dizziness [Unknown]
  - Catheterisation venous [Unknown]
  - Hypoxia [Unknown]
  - Catheter site pain [Unknown]
  - Nausea [Unknown]
  - Fluid retention [Not Recovered/Not Resolved]
  - Abdominal distension [Unknown]
  - Therapeutic response decreased [Unknown]
  - Catheter site erythema [Unknown]
  - Oedema [Unknown]
  - Fluid overload [Unknown]
  - Haemoptysis [Unknown]
  - Hepatic neoplasm [Unknown]
  - Anaemia [Unknown]
  - Device occlusion [Unknown]
  - Weight decreased [Unknown]
  - Swelling [Not Recovered/Not Resolved]
  - Hospitalisation [Unknown]
  - Vomiting [Unknown]
  - Device alarm issue [Unknown]
  - Blood count abnormal [Unknown]
  - Catheter management [Unknown]

NARRATIVE: CASE EVENT DATE: 20160309
